FAERS Safety Report 7864885-9 (Version None)
Quarter: 2011Q4

REPORT INFORMATION
  Report Type: 
  Country: None (occurrence: None)
  Receive Date: 20111028
  Receipt Date: 20100913
  Transmission Date: 20120403
  Serious: No
  Sender: FDA-Public Use
  Company Number: US-GLAXOSMITHKLINE-A0880838A

PATIENT
  Age: 61 Year
  Sex: Male

DRUGS (6)
  1. METOPROLOL TARTRATE [Concomitant]
  2. FAMOTIDINE [Concomitant]
  3. PAIN MEDICATION [Concomitant]
     Indication: ARTHRITIS
  4. ADVAIR DISKUS 100/50 [Suspect]
     Indication: ASTHMA
     Dosage: 1PUFF VARIABLE DOSE
     Route: 055
     Dates: start: 20090101
  5. AMOXICILLIN [Concomitant]
  6. HYDROCODONE BITARTRATE [Concomitant]

REACTIONS (2)
  - DRUG ADMINISTRATION ERROR [None]
  - OVERDOSE [None]
